FAERS Safety Report 13033583 (Version 2)
Quarter: 2017Q1

REPORT INFORMATION
  Report Type: Report from Study
  Country: US (occurrence: US)
  Receive Date: 20161216
  Receipt Date: 20170324
  Transmission Date: 20170428
  Serious: Yes (Other)
  Sender: FDA-Public Use
  Company Number: PHHY2016US047887

PATIENT
  Age: 48 Year
  Sex: Female

DRUGS (1)
  1. GILENYA [Suspect]
     Active Substance: FINGOLIMOD HYDROCHLORIDE
     Indication: MULTIPLE SCLEROSIS
     Dosage: UNK, QD
     Route: 048

REACTIONS (10)
  - Haemangioma of skin [Unknown]
  - Mean cell haemoglobin increased [Unknown]
  - Seborrhoeic keratosis [Unknown]
  - Lymphocyte count decreased [Unknown]
  - Open angle glaucoma [Unknown]
  - Neutrophil count increased [Unknown]
  - Lentigo [Unknown]
  - Melanocytic naevus [Unknown]
  - Rosacea [Unknown]
  - Skin papilloma [Unknown]

NARRATIVE: CASE EVENT DATE: 20160112
